FAERS Safety Report 22163457 (Version 2)
Quarter: 2023Q2

REPORT INFORMATION
  Report Type: Spontaneous
  Country: GB (occurrence: GB)
  Receive Date: 20230401
  Receipt Date: 20230508
  Transmission Date: 20230721
  Serious: Yes (Death, Other)
  Sender: FDA-Public Use
  Company Number: None

PATIENT
  Age: 56 Year
  Sex: Female
  Weight: 60 kg

DRUGS (4)
  1. PIOGLITAZONE [Suspect]
     Active Substance: PIOGLITAZONE
     Indication: Diabetes mellitus
     Dosage: 45 MG ONCE DAILY
  2. GLICLAZIDE [Concomitant]
     Active Substance: GLICLAZIDE
     Indication: Diabetes mellitus
  3. QUETIAPINE [Concomitant]
     Active Substance: QUETIAPINE
     Indication: Psychotic disorder
  4. SIMVASTATIN [Concomitant]
     Active Substance: SIMVASTATIN
     Indication: Hyperlipidaemia

REACTIONS (5)
  - Sudden death [Fatal]
  - Euglycaemic diabetic ketoacidosis [Fatal]
  - Delirium [Unknown]
  - Urinary tract infection [Unknown]
  - Abdominal pain upper [Unknown]
